FAERS Safety Report 6300669-0 (Version None)
Quarter: 2009Q3

REPORT INFORMATION
  Report Type: 
  Country: None (occurrence: None)
  Receive Date: 20090807
  Receipt Date: 20070621
  Transmission Date: 20100115
  Serious: Yes (Other)
  Sender: FDA-Public Use
  Company Number: US-ASTRAZENECA-2006UW11767

PATIENT
  Age: 15749 Day
  Sex: Male
  Weight: 96.6 kg

DRUGS (21)
  1. SEROQUEL [Suspect]
     Indication: ANXIETY
     Dosage: 25-100 MG
     Route: 048
     Dates: start: 20021009
  2. SEROQUEL [Suspect]
     Indication: DEPRESSION
     Dosage: 25-100 MG
     Route: 048
     Dates: start: 20021009
  3. SEROQUEL [Suspect]
     Indication: MAJOR DEPRESSION
     Dosage: 25-100 MG
     Route: 048
     Dates: start: 20021009
  4. SEROQUEL [Suspect]
     Route: 048
     Dates: start: 20040101
  5. SEROQUEL [Suspect]
     Route: 048
     Dates: start: 20040101
  6. SEROQUEL [Suspect]
     Route: 048
     Dates: start: 20040101
  7. AMITRIPTYLINE HCL [Concomitant]
     Route: 048
     Dates: start: 19991126
  8. BUPROPION HYDROCHLORIDE [Concomitant]
     Route: 048
     Dates: start: 19990911
  9. CODEINE 30/ACETAMINOPHEN [Concomitant]
     Indication: PAIN
     Route: 048
     Dates: start: 20030606
  10. DILTIAZEM [Concomitant]
     Route: 048
     Dates: start: 20030606
  11. METHOCARBAMOL [Concomitant]
     Dosage: 750 MG TWO TABLETS EVERY MORNING THEN TAKE ONE TABLET AT NOON THEN TAKE TWO TABLETS EVERY EVENING
     Route: 048
     Dates: start: 20030606
  12. PREDNISONE [Concomitant]
     Dosage: 10-40 MG
     Route: 048
     Dates: start: 19990801
  13. VALPROIC ACID [Concomitant]
     Dosage: 250-750 MG
     Route: 048
     Dates: start: 20030606
  14. THEOPHYLLINE [Concomitant]
     Indication: DYSPNOEA
     Route: 048
     Dates: start: 20030606
  15. ZAFIRLUKAST [Concomitant]
     Route: 048
     Dates: start: 20030606
  16. ALLOPURINOL [Concomitant]
     Indication: GOUTY ARTHRITIS
     Dates: start: 20050311
  17. OMEPRAZOLE [Concomitant]
     Indication: GASTROOESOPHAGEAL REFLUX DISEASE
     Dates: start: 20060626
  18. PLAVIX [Concomitant]
     Dates: start: 20060626
  19. GABAPENTIN [Concomitant]
     Dates: start: 19991104
  20. CRESTOR [Concomitant]
     Dates: start: 20060626
  21. LISINOPRIL [Concomitant]
     Dosage: 1.25-20 MG
     Dates: start: 20040725

REACTIONS (4)
  - DIABETES MELLITUS [None]
  - DIABETIC NEPHROPATHY [None]
  - NEUROPATHY PERIPHERAL [None]
  - TYPE 2 DIABETES MELLITUS [None]
